FAERS Safety Report 9522382 (Version 2)
Quarter: 2013Q4

REPORT INFORMATION
  Report Type: Spontaneous
  Country: US (occurrence: US)
  Receive Date: 20130913
  Receipt Date: 20131203
  Transmission Date: 20140711
  Serious: No
  Sender: FDA-Public Use
  Company Number: US-BAYER-2013-110320

PATIENT
  Age: 25 Year
  Sex: Female

DRUGS (9)
  1. MIRENA [Suspect]
     Indication: CONTRACEPTION
     Dosage: 20 ?G/D, CONT
     Route: 015
     Dates: start: 20130510, end: 20130827
  2. MIRENA [Suspect]
     Indication: MENORRHAGIA
  3. ZOFRAN [Concomitant]
     Dosage: 8 MG, UNK
  4. AMBIEN [Concomitant]
     Dosage: 5 MG, UNK
  5. ZYRTEC [Concomitant]
  6. PRENATAL [VIT C,B5,B12,D2,B3,B6,RETINOL PALMIT,B2,B1 MONONITR] [Concomitant]
  7. PROTONIX [Concomitant]
     Dosage: 20 MG, UNK
  8. KLONOPIN [Concomitant]
     Dosage: 0.5 MG, UNK
  9. ZOLOFT [Concomitant]
     Dosage: 50 MG, UNK

REACTIONS (4)
  - Device expulsion [None]
  - Menstrual disorder [None]
  - Pregnancy with contraceptive device [None]
  - Drug ineffective [None]
